FAERS Safety Report 23501720 (Version 1)
Quarter: 2024Q1

REPORT INFORMATION
  Report Type: Spontaneous
  Country: JP (occurrence: JP)
  Receive Date: 20240208
  Receipt Date: 20240208
  Transmission Date: 20240409
  Serious: Yes (Other)
  Sender: FDA-Public Use
  Company Number: JP-ABBVIE-5628873

PATIENT
  Age: 76 Year
  Sex: Female

DRUGS (1)
  1. ASENAPINE MALEATE [Suspect]
     Active Substance: ASENAPINE MALEATE
     Indication: Schizophrenia
     Dosage: 5 MILLIGRAM, TWICE DAILY
     Route: 060

REACTIONS (1)
  - Urinary retention [Unknown]
